FAERS Safety Report 4366294-6 (Version None)
Quarter: 2004Q2

REPORT INFORMATION
  Report Type: 
  Country: None (occurrence: None)
  Receive Date: 20040526
  Receipt Date: 20040526
  Transmission Date: 20050107
  Serious: No
  Sender: FDA-Public Use
  Company Number: None

PATIENT
  Age: 37 Year
  Sex: Male
  Weight: 90.3 kg

DRUGS (15)
  1. CLOZAPINE [Suspect]
     Indication: SCHIZOAFFECTIVE DISORDER
     Dosage: 50 MG ORAL
     Route: 048
     Dates: start: 20040319, end: 20040329
  2. CLOZAPINE [Suspect]
     Indication: SCHIZOAFFECTIVE DISORDER
     Dosage: 300 MG QHS ORAL
     Route: 048
     Dates: start: 20040319, end: 20040329
  3. BENZTROPINE MESYLATE [Concomitant]
  4. DOCUSATE NA [Concomitant]
  5. HALOPERIDOL [Concomitant]
  6. HYDROXYZINE [Concomitant]
  7. NORVASC [Concomitant]
  8. ZESTRIL [Concomitant]
  9. APAP TAB [Concomitant]
  10. ZESTRIL [Concomitant]
  11. APAP TAB [Concomitant]
  12. BENADRYL [Concomitant]
  13. HALOPERIDOL [Concomitant]
  14. MAALOX [Concomitant]
  15. MOM [Concomitant]

REACTIONS (2)
  - DIABETES MELLITUS INADEQUATE CONTROL [None]
  - HYPERGLYCAEMIA [None]
